FAERS Safety Report 6211336-6 (Version None)
Quarter: 2009Q2

REPORT INFORMATION
  Report Type: 
  Country: None (occurrence: None)
  Receive Date: 20090522
  Receipt Date: 20090122
  Transmission Date: 20091009
  Serious: No
  Sender: FDA-Public Use
  Company Number: 8041631

PATIENT
  Age: 34 Year
  Sex: Female
  Weight: 71.8 kg

DRUGS (2)
  1. CIMZIA [Suspect]
     Indication: CROHN'S DISEASE
     Dosage: 400 MG 1/2W SC
     Route: 058
     Dates: start: 20081121
  2. VYTORIN [Concomitant]

REACTIONS (2)
  - DIARRHOEA [None]
  - NASOPHARYNGITIS [None]
